FAERS Safety Report 5075755-6 (Version None)
Quarter: 2006Q3

REPORT INFORMATION
  Report Type: 
  Country: None (occurrence: None)
  Receive Date: 20060807
  Receipt Date: 20060727
  Transmission Date: 20061208
  Serious: Yes (Life-Threatening, Hospitalization, Other)
  Sender: FDA-Public Use
  Company Number: 2006092769

PATIENT
  Sex: Male

DRUGS (3)
  1. NORVASC [Suspect]
     Indication: HYPERTENSION
     Dosage: 5 MG (5 MG, 1 IN 1 D)
  2. LIPITOR [Suspect]
     Indication: HYPERLIPIDAEMIA
     Dosage: 20 MG (20 MG, 1 IN 1 D)
  3. GEODON [Suspect]
     Indication: DEPRESSION
     Dosage: 120 MG (60 MG, 2 IN 1 D)

REACTIONS (3)
  - BLOOD PRESSURE DECREASED [None]
  - GENERAL PHYSICAL CONDITION ABNORMAL [None]
  - MULTIPLE DRUG OVERDOSE [None]
